FAERS Safety Report 9213093 (Version 1)
Quarter: 2013Q2

REPORT INFORMATION
  Report Type: Spontaneous
  Country: US (occurrence: None)
  Receive Date: 20130403
  Receipt Date: 20130403
  Transmission Date: 20140414
  Serious: Yes (Hospitalization)
  Sender: FDA-Public Use
  Company Number: None

PATIENT
  Age: 31 Year
  Sex: Female
  Weight: 65.77 kg

DRUGS (3)
  1. NAFCILLIN [Suspect]
     Indication: ENDOCARDITIS STAPHYLOCOCCAL
     Dosage: 2G Q4H IV DRIP
     Route: 041
     Dates: start: 20130316, end: 20130331
  2. NAFCILLIN [Suspect]
     Indication: LUNG ABSCESS
     Dosage: 2G Q4H IV DRIP
     Route: 041
     Dates: start: 20130316, end: 20130331
  3. KCL [Concomitant]

REACTIONS (1)
  - Hypokalaemia [None]
